FAERS Safety Report 11812970 (Version 2)
Quarter: 2015Q4

REPORT INFORMATION
  Report Type: Report from Study
  Country: CA (occurrence: CA)
  Receive Date: 20151209
  Receipt Date: 20151215
  Transmission Date: 20160305
  Serious: Yes (Other)
  Sender: FDA-Public Use
  Company Number: CA-ROCHE-1665900

PATIENT
  Sex: Female

DRUGS (12)
  1. ESBRIET [Suspect]
     Active Substance: PIRFENIDONE
     Route: 048
     Dates: start: 20151112
  2. LASIX [Concomitant]
     Active Substance: FUROSEMIDE
  3. RABEPRAZOLE [Concomitant]
     Active Substance: RABEPRAZOLE
  4. NORVASC [Concomitant]
     Active Substance: AMLODIPINE BESYLATE
  5. LIPITOR [Concomitant]
     Active Substance: ATORVASTATIN CALCIUM
  6. ASA [Concomitant]
     Active Substance: ASPIRIN
  7. ESBRIET [Suspect]
     Active Substance: PIRFENIDONE
     Indication: IDIOPATHIC PULMONARY FIBROSIS
     Route: 048
     Dates: start: 20151105
  8. FLUVOXAMINE [Concomitant]
     Active Substance: FLUVOXAMINE
  9. ADVAIR HFA [Concomitant]
     Active Substance: FLUTICASONE PROPIONATE\SALMETEROL XINAFOATE
  10. OXYGEN. [Concomitant]
     Active Substance: OXYGEN
  11. ESBRIET [Suspect]
     Active Substance: PIRFENIDONE
     Route: 048
     Dates: start: 20151119, end: 20151127
  12. DIOVAN [Concomitant]
     Active Substance: VALSARTAN

REACTIONS (5)
  - Ill-defined disorder [Unknown]
  - Hypersomnia [Unknown]
  - Weight decreased [Not Recovered/Not Resolved]
  - Hypophagia [Unknown]
  - Decreased appetite [Not Recovered/Not Resolved]
